FAERS Safety Report 5907715-4 (Version None)
Quarter: 2008Q4

REPORT INFORMATION
  Report Type: 
  Country: None (occurrence: None)
  Receive Date: 20081003
  Receipt Date: 19900403
  Transmission Date: 20090506
  Serious: Yes (Death, Congenital Anomaly, Other)
  Sender: FDA-Public Use
  Company Number: US-ROCHE-900200446004

PATIENT
  Sex: Male
  Weight: 2.8 kg

DRUGS (8)
  1. ACCUTANE [Suspect]
     Indication: ACNE
     Dates: start: 19870930, end: 19880217
  2. ACCUTANE [Suspect]
     Dates: start: 19861218, end: 19870508
  3. BACTRIM DS [Suspect]
     Dates: start: 19870929
  4. ERYTHROMYCIN [Concomitant]
  5. MEDROL [Concomitant]
  6. ERYC [Concomitant]
     Dates: start: 19870929
  7. PREDNISONE [Concomitant]
  8. ORTHO-NOVUM 7/7/7-21 [Concomitant]
     Dates: start: 19870721, end: 19880821

REACTIONS (15)
  - CARDIAC ARREST [None]
  - CONGENITAL BRAIN DAMAGE [None]
  - CONGENITAL CENTRAL NERVOUS SYSTEM ANOMALY [None]
  - CONGENITAL EYE DISORDER [None]
  - CONGENITAL HYDROCEPHALUS [None]
  - CONVULSION NEONATAL [None]
  - CRYPTORCHISM [None]
  - DYSMORPHISM [None]
  - DYSPHAGIA [None]
  - EAR MALFORMATION [None]
  - PREMATURE BABY [None]
  - SKULL MALFORMATION [None]
  - SPINE MALFORMATION [None]
  - SPLENOMEGALY [None]
  - URINARY TRACT MALFORMATION [None]
